FAERS Safety Report 5694792-1 (Version None)
Quarter: 2008Q2

REPORT INFORMATION
  Report Type: 
  Country: None (occurrence: None)
  Receive Date: 20080404
  Receipt Date: 20080321
  Transmission Date: 20081010
  Serious: Yes (Other)
  Sender: FDA-Public Use
  Company Number: DE-AMGEN-UK271470

PATIENT

DRUGS (10)
  1. NEUPOGEN [Suspect]
     Indication: CHEMOTHERAPY
  2. BUSULFAN [Concomitant]
  3. ACYCLOVIR [Concomitant]
  4. CO-TRIMOXAZOLE [Concomitant]
  5. CEPHALOSPORIN [Concomitant]
  6. ANTIBIOTICS [Concomitant]
  7. AMPHOTERICIN B [Concomitant]
  8. CYCLOSPORINE [Concomitant]
  9. METHOTREXATE [Concomitant]
  10. PREDNISOLONE [Concomitant]

REACTIONS (3)
  - ACUTE RESPIRATORY DISTRESS SYNDROME [None]
  - ENGRAFTMENT SYNDROME [None]
  - VENOOCCLUSIVE LIVER DISEASE [None]
